FAERS Safety Report 5057453-8 (Version None)
Quarter: 2006Q3

REPORT INFORMATION
  Report Type: 
  Country: None (occurrence: None)
  Receive Date: 20060721
  Receipt Date: 20051008
  Transmission Date: 20061208
  Serious: No
  Sender: FDA-Public Use
  Company Number: US-GLAXOSMITHKLINE-A0577688A

PATIENT

DRUGS (3)
  1. AVANDIA [Suspect]
     Indication: DRUG USE FOR UNKNOWN INDICATION
     Route: 048
     Dates: start: 20050101
  2. NO CONCURRENT MEDICATION [Concomitant]
  3. ACE INHIBITOR [Concomitant]
     Dates: end: 20050801

REACTIONS (1)
  - COUGH [None]
